FAERS Safety Report 17631583 (Version 6)
Quarter: 2021Q1

REPORT INFORMATION
  Report Type: Spontaneous
  Country: JP (occurrence: JP)
  Receive Date: 20200406
  Receipt Date: 20210315
  Transmission Date: 20210419
  Serious: Yes (Hospitalization, Other)
  Sender: FDA-Public Use
  Company Number: JP-AMGEN-JPNSP2020054003

PATIENT
  Age: 52 Year
  Sex: Male
  Weight: 103.5 kg

DRUGS (23)
  1. ORKEDIA [Concomitant]
     Active Substance: EVOCALCET
     Dosage: 2 MG, EVERYDAY
     Route: 048
     Dates: start: 20180906, end: 20181015
  2. ORKEDIA [Concomitant]
     Active Substance: EVOCALCET
     Dosage: 2.0 MG, Q56H
     Route: 048
     Dates: start: 20180814, end: 20180903
  3. ORKEDIA [Concomitant]
     Active Substance: EVOCALCET
     Dosage: 1 MG, Q56H
     Route: 048
     Dates: start: 20200215, end: 20201022
  4. PARSABIV [Suspect]
     Active Substance: ETELCALCETIDE HYDROCHLORIDE
     Dosage: 2.5 MG, Q56H
     Route: 010
     Dates: start: 20201024, end: 20201119
  5. OXAROL [Concomitant]
     Active Substance: MAXACALCITOL
     Dosage: 5 MICROGRAM, 3 TIMES/WK
     Route: 065
     Dates: end: 20200118
  6. OXAROL [Concomitant]
     Active Substance: MAXACALCITOL
     Dosage: 2.5 UG, Q56H
     Route: 065
     Dates: start: 20201110
  7. ALFAROL [Concomitant]
     Active Substance: ALFACALCIDOL
     Dosage: 2.0 UG, Q56H
     Route: 048
     Dates: start: 20201024
  8. LANTHANUM CARBONATE. [Concomitant]
     Active Substance: LANTHANUM CARBONATE
     Dosage: 1000 MG, EVERYDAY
     Route: 048
  9. ORKEDIA [Concomitant]
     Active Substance: EVOCALCET
     Dosage: 4 MG, EVERYDAY
     Route: 048
     Dates: start: 20190112, end: 20190405
  10. ORKEDIA [Concomitant]
     Active Substance: EVOCALCET
     Dosage: 6 MG, EVERYDAY
     Route: 048
     Dates: start: 20190511, end: 20190621
  11. PARSABIV [Suspect]
     Active Substance: ETELCALCETIDE HYDROCHLORIDE
     Dosage: 12.5 MILLIGRAM, 3 TIMES/WK
     Route: 010
     Dates: start: 20191220, end: 20200114
  12. RIONA [Concomitant]
     Active Substance: FERRIC CITRATE ANHYDROUS
     Dosage: 1500 MG, EVERYDAY
     Route: 048
     Dates: start: 20181107
  13. PARSABIV [Suspect]
     Active Substance: ETELCALCETIDE HYDROCHLORIDE
     Dosage: 15 MILLIGRAM, 3 TIMES/WK
     Route: 010
     Dates: start: 20200116, end: 20200204
  14. ORKEDIA [Concomitant]
     Active Substance: EVOCALCET
     Dosage: 1.0 MG, Q56H
     Route: 048
     Dates: start: 20180809, end: 20180811
  15. ORKEDIA [Concomitant]
     Active Substance: EVOCALCET
     Dosage: 9 MG, EVERYDAY
     Route: 048
     Dates: start: 20190622, end: 20190826
  16. PRECIPITATED CALCIUM CARBONATE [Concomitant]
     Active Substance: CALCIUM CARBONATE
     Dosage: 1500 MG, EVERYDAY
     Route: 048
  17. INSULIN [Concomitant]
     Active Substance: INSULIN NOS
     Dosage: UNK
     Route: 065
  18. PARSABIV [Suspect]
     Active Substance: ETELCALCETIDE HYDROCHLORIDE
     Dosage: 5.0 MG, Q56H
     Route: 010
     Dates: start: 20201121
  19. ALFAROL [Concomitant]
     Active Substance: ALFACALCIDOL
     Dosage: 0.5 MICROGRAM, 3 TIMES/WK
     Route: 048
     Dates: end: 20201022
  20. ORKEDIA [Concomitant]
     Active Substance: EVOCALCET
     Dosage: 3 MG, EVERYDAY
     Route: 048
     Dates: start: 20181016, end: 20190111
  21. ORKEDIA [Concomitant]
     Active Substance: EVOCALCET
     Dosage: 5 MG, EVERYDAY
     Route: 048
     Dates: start: 20190406, end: 20190510
  22. ORKEDIA [Concomitant]
     Active Substance: EVOCALCET
     Dosage: 10 MG, EVERYDAY
     Route: 048
     Dates: start: 20190827, end: 20191127
  23. PARSABIV [Suspect]
     Active Substance: ETELCALCETIDE HYDROCHLORIDE
     Indication: HYPERPARATHYROIDISM SECONDARY
     Dosage: 10 MILLIGRAM, 3 TIMES/WK
     Route: 010
     Dates: start: 20191130, end: 20191218

REACTIONS (5)
  - Cataract [Recovered/Resolved]
  - Hyperparathyroidism secondary [Recovering/Resolving]
  - Ligament sprain [Unknown]
  - Peripheral arterial occlusive disease [Recovered/Resolved]
  - Tendon rupture [Recovered/Resolved]

NARRATIVE: CASE EVENT DATE: 20200212
